FAERS Safety Report 6991630-1 (Version None)
Quarter: 2010Q3

REPORT INFORMATION
  Report Type: 
  Country: None (occurrence: None)
  Receive Date: 20100917
  Receipt Date: 20100908
  Transmission Date: 20110219
  Serious: Yes (Hospitalization, Other)
  Sender: FDA-Public Use
  Company Number: CHPA2010US14607

PATIENT
  Age: 10 Year
  Sex: Male

DRUGS (2)
  1. PREVACID 24 HR [Suspect]
     Dosage: 30 MG, BID
     Route: 048
  2. PREVACID 24 HR [Suspect]
     Dosage: 15 MG, PRN
     Route: 048

REACTIONS (6)
  - ENDOSCOPY [None]
  - HAEMATEMESIS [None]
  - INAPPROPRIATE SCHEDULE OF DRUG ADMINISTRATION [None]
  - INCORRECT DOSE ADMINISTERED [None]
  - OVERDOSE [None]
  - WRONG TECHNIQUE IN DRUG USAGE PROCESS [None]
